FAERS Safety Report 25476784 (Version 1)
Quarter: 2025Q2

REPORT INFORMATION
  Report Type: Spontaneous
  Country: FR (occurrence: FR)
  Receive Date: 20250625
  Receipt Date: 20250625
  Transmission Date: 20250717
  Serious: Yes (Other)
  Sender: AUROBINDO
  Company Number: FR-AFSSAPS-AVMP2025000140

PATIENT
  Age: 30 Year
  Sex: Male

DRUGS (2)
  1. DIAZEPAM [Suspect]
     Active Substance: DIAZEPAM
     Indication: Product used for unknown indication
     Route: 048
  2. DIAZEPAM [Suspect]
     Active Substance: DIAZEPAM
     Route: 048
     Dates: start: 2022

REACTIONS (1)
  - Drug use disorder [Recovering/Resolving]
